FAERS Safety Report 14715343 (Version 1)
Quarter: 2018Q1

REPORT INFORMATION
  Report Type: Spontaneous
  Country: US (occurrence: US)
  Receive Date: 20180330
  Receipt Date: 20180330
  Transmission Date: 20180509
  Serious: Yes (Disabling)
  Sender: FDA-Public Use
  Company Number: None

PATIENT
  Age: 43 Year
  Sex: Female
  Weight: 81 kg

DRUGS (1)
  1. CIPROFLOXACIN HCL 500 MG TAB [Suspect]
     Active Substance: CIPROFLOXACIN HYDROCHLORIDE
     Indication: SKIN INFECTION
     Dosage: ?          QUANTITY:14 TABLETS;?
     Route: 048
     Dates: start: 20170308, end: 20170315

REACTIONS (5)
  - Tendonitis [None]
  - Tendon rupture [None]
  - Pain in extremity [None]
  - Plantar fasciitis [None]
  - Trigger finger [None]

NARRATIVE: CASE EVENT DATE: 20170308
